FAERS Safety Report 17335912 (Version 1)
Quarter: 2020Q1

REPORT INFORMATION
  Report Type: Spontaneous
  Country: US (occurrence: US)
  Receive Date: 20200128
  Receipt Date: 20200128
  Transmission Date: 20200409
  Serious: Yes (Other)
  Sender: FDA-Public Use
  Company Number: US-AMERICAN REGENT INC-2020000171

PATIENT
  Age: 58 Year
  Sex: Male

DRUGS (19)
  1. DOPAMINE HCL INJECTION, USP (1805-25) [Suspect]
     Active Substance: DOPAMINE HYDROCHLORIDE
     Dosage: TAPERED OFF OF DOPAMINE ON DAY 8
     Route: 065
  2. NOREPINEPHRINE BITARTRATE. [Suspect]
     Active Substance: NOREPINEPHRINE BITARTRATE
     Dosage: 26 UG/MIN ON DAY 1 (6 HR)
     Route: 065
  3. HEPARIN [Concomitant]
     Active Substance: HEPARIN SODIUM
     Indication: ANTICOAGULANT THERAPY
     Dosage: 600 UNITS/HR
     Route: 042
  4. DOPAMINE HCL INJECTION, USP (1805-25) [Suspect]
     Active Substance: DOPAMINE HYDROCHLORIDE
     Dosage: 15 UG/KG/MIN ON DAY 3 (48 HR)
     Route: 065
  5. DOPAMINE HCL INJECTION, USP (1805-25) [Suspect]
     Active Substance: DOPAMINE HYDROCHLORIDE
     Dosage: 18 UG/KG/MIN ON DAY 6 (120 HR)
     Route: 065
  6. NOREPINEPHRINE BITARTRATE. [Suspect]
     Active Substance: NOREPINEPHRINE BITARTRATE
     Indication: CARDIOGENIC SHOCK
     Dosage: 30 UG/MIN ON DAY 1 (INITIAL)
     Route: 065
  7. HEPARIN [Concomitant]
     Active Substance: HEPARIN SODIUM
     Indication: ACUTE MYOCARDIAL INFARCTION
     Dosage: 5000 UNITS
     Route: 042
  8. DOPAMINE HCL INJECTION, USP (1805-25) [Suspect]
     Active Substance: DOPAMINE HYDROCHLORIDE
     Dosage: 14 UG/KG/MIN ON DAY 5 (96 HR)
     Route: 065
  9. DOPAMINE HCL INJECTION, USP (1805-25) [Suspect]
     Active Substance: DOPAMINE HYDROCHLORIDE
     Dosage: 7 UG/KG/MIN ON DAY 7 (148 HR)
     Route: 065
  10. ASPIRIN. [Concomitant]
     Active Substance: ASPIRIN
     Indication: ACUTE MYOCARDIAL INFARCTION
     Dosage: 162 MILLIGRAM
     Route: 048
  11. DOPAMINE HCL INJECTION, USP (1805-25) [Suspect]
     Active Substance: DOPAMINE HYDROCHLORIDE
     Dosage: 15 UG/KG/MIN ON DAY 4 (72 HR)
     Route: 065
  12. DOPAMINE HCL INJECTION, USP (1805-25) [Suspect]
     Active Substance: DOPAMINE HYDROCHLORIDE
     Dosage: 15 UG/KG/MIN ON DAY 1 (6 HR)
     Route: 065
  13. NOREPINEPHRINE BITARTRATE. [Suspect]
     Active Substance: NOREPINEPHRINE BITARTRATE
     Dosage: 2 UG/MIN ON DAY 4 (72 HR)
     Route: 065
  14. HEPARIN [Concomitant]
     Active Substance: HEPARIN SODIUM
     Dosage: 400-800 UNITS/HR
     Route: 042
  15. DOPAMINE HCL INJECTION, USP (1805-25) [Suspect]
     Active Substance: DOPAMINE HYDROCHLORIDE
     Dosage: 15 UG/KG/MIN ON DAY 2 (24 HR)
     Route: 065
  16. NOREPINEPHRINE BITARTRATE. [Suspect]
     Active Substance: NOREPINEPHRINE BITARTRATE
     Dosage: 16 UG/MIN ON DAY 2 (24 HR)
     Route: 065
  17. NOREPINEPHRINE BITARTRATE. [Suspect]
     Active Substance: NOREPINEPHRINE BITARTRATE
     Dosage: 10 UG/MIN ON DAY 3 (48 HR)
     Route: 065
  18. DOPAMINE HCL INJECTION, USP (1805-25) [Suspect]
     Active Substance: DOPAMINE HYDROCHLORIDE
     Indication: CARDIOGENIC SHOCK
     Dosage: 15 UG/KG/MIN ON DAY 1 (INITIAL)
     Route: 065
  19. HEPARIN [Concomitant]
     Active Substance: HEPARIN SODIUM
     Dosage: UNK
     Route: 042

REACTIONS (3)
  - Cardiac index decreased [Recovered/Resolved]
  - Drug ineffective [Recovered/Resolved]
  - General physical health deterioration [Recovered/Resolved]
